FAERS Safety Report 20893164 (Version 1)
Quarter: 2022Q2

REPORT INFORMATION
  Report Type: Spontaneous
  Country: US (occurrence: US)
  Receive Date: 20220531
  Receipt Date: 20220531
  Transmission Date: 20220720
  Serious: Yes (Other)
  Sender: FDA-Public Use
  Company Number: US-BRISTOL-MYERS SQUIBB COMPANY-2022-043660

PATIENT
  Age: 39 Year
  Sex: Male

DRUGS (4)
  1. SPRYCEL [Suspect]
     Active Substance: DASATINIB
     Indication: Acute lymphocytic leukaemia
     Dosage: PATIENT REPORTED HE WAS INITIALLY ON 15MG DAILY AND DOSAGE CHANGE ORDERED BY PHYSICIAN TO 30MG DAILY
     Route: 065
  2. SPRYCEL [Suspect]
     Active Substance: DASATINIB
     Dosage: PATIENT REPORTED HE WAS INITIALLY ON 15MG DAILY AND DOSAGE CHANGE ORDERED BY PHYSICIAN TO 30MG DAILY
     Route: 065
  3. ICLUSIG [Concomitant]
     Active Substance: PONATINIB
  4. GABAPENTIN [Concomitant]
     Active Substance: GABAPENTIN

REACTIONS (2)
  - Acute lymphocytic leukaemia recurrent [Unknown]
  - Hepatic enzyme increased [Unknown]

NARRATIVE: CASE EVENT DATE: 20220516
